FAERS Safety Report 7814482-6 (Version None)
Quarter: 2011Q4

REPORT INFORMATION
  Report Type: 
  Country: None (occurrence: None)
  Receive Date: 20111014
  Receipt Date: 20111007
  Transmission Date: 20120403
  Serious: Yes (Other)
  Sender: FDA-Public Use
  Company Number: PHHY2011SI89285

PATIENT
  Age: 78 Year
  Sex: Male

DRUGS (3)
  1. GLICLAZIDE [Concomitant]
     Dosage: 30 MG, QID
  2. ALISKIREN [Suspect]
     Dosage: 300 MG, UNK
     Dates: start: 20091218
  3. ACARBOSE [Concomitant]
     Dosage: 100 MG, TID

REACTIONS (1)
  - BLOOD GLUCOSE INCREASED [None]
